FAERS Safety Report 20054467 (Version 1)
Quarter: 2021Q4

REPORT INFORMATION
  Report Type: Spontaneous
  Country: US (occurrence: US)
  Receive Date: 20211110
  Receipt Date: 20211110
  Transmission Date: 20220303
  Serious: No
  Sender: FDA-Public Use
  Company Number: US-SA-SAC20211107000094

PATIENT
  Age: 68 Year
  Sex: Female

DRUGS (14)
  1. DUPIXENT [Suspect]
     Active Substance: DUPILUMAB
     Dosage: 300 MG, QOW
     Route: 058
     Dates: start: 20210129
  2. LINZESS [Concomitant]
     Active Substance: LINACLOTIDE
  3. DULOXETINE [Concomitant]
     Active Substance: DULOXETINE
  4. ALBUTEROL\IPRATROPIUM [Concomitant]
     Active Substance: ALBUTEROL\IPRATROPIUM
  5. OMEPRAZOLE [Concomitant]
     Active Substance: OMEPRAZOLE
  6. TOPIRAMATE [Concomitant]
     Active Substance: TOPIRAMATE
  7. ESCITALOPRAM [Concomitant]
     Active Substance: ESCITALOPRAM OXALATE
  8. SYMBICORT [Concomitant]
     Active Substance: BUDESONIDE\FORMOTEROL FUMARATE DIHYDRATE
  9. CLONAZEPAM [Concomitant]
     Active Substance: CLONAZEPAM
  10. MONTELUKAST [Concomitant]
     Active Substance: MONTELUKAST SODIUM
  11. SOLIFENACIN [Concomitant]
     Active Substance: SOLIFENACIN
  12. AZELASTINE [Concomitant]
     Active Substance: AZELASTINE
  13. CELECOXIB [Concomitant]
     Active Substance: CELECOXIB
  14. TELMISARTAN [Concomitant]
     Active Substance: TELMISARTAN

REACTIONS (1)
  - Condition aggravated [Not Recovered/Not Resolved]

NARRATIVE: CASE EVENT DATE: 20211101
